FAERS Safety Report 9540321 (Version 1)
Quarter: 2013Q2

REPORT INFORMATION
  Report Type: Spontaneous
  Country: US (occurrence: None)
  Receive Date: 20130531
  Receipt Date: 20130531
  Transmission Date: 20140414
  Serious: Yes (Hospitalization)
  Sender: FDA-Public Use
  Company Number: 353482

PATIENT
  Age: 14 Year
  Sex: Male
  Weight: 63.5 kg

DRUGS (3)
  1. NORDITROPIN FLEXPRO [Suspect]
     Indication: BODY HEIGHT BELOW NORMAL
     Dosage: 3 MG, DAILY AT NIGHT, SUBCUTANEOUS
     Route: 058
     Dates: start: 201111
  2. DEXMETHYLPHENIDATE (DEXMETHYLPHENIDATE) [Concomitant]
  3. VITAMINS /00067501/ [Concomitant]

REACTIONS (1)
  - Epiphysiolysis [None]
